FAERS Safety Report 11694741 (Version 1)
Quarter: 2015Q4

REPORT INFORMATION
  Report Type: Report from Study
  Country: DE (occurrence: DE)
  Receive Date: 20151103
  Receipt Date: 20151103
  Transmission Date: 20160304
  Serious: Yes (Death)
  Sender: FDA-Public Use
  Company Number: DE-PFIZER INC-2015369816

PATIENT
  Age: 44 Year
  Sex: Female

DRUGS (5)
  1. CASPOFUNGIN [Suspect]
     Active Substance: CASPOFUNGIN
     Indication: PNEUMONIA
  2. CASPOFUNGIN [Suspect]
     Active Substance: CASPOFUNGIN
     Indication: SEPSIS
  3. FLUCONAZOLE. [Suspect]
     Active Substance: FLUCONAZOLE
     Indication: PNEUMONIA
     Dosage: UNK
  4. FLUCONAZOLE. [Suspect]
     Active Substance: FLUCONAZOLE
     Indication: SEPSIS
  5. CASPOFUNGIN [Suspect]
     Active Substance: CASPOFUNGIN
     Indication: SCEDOSPORIUM INFECTION
     Dosage: UNK

REACTIONS (1)
  - Drug ineffective [Fatal]
